FAERS Safety Report 9916118 (Version 1)
Quarter: 2014Q1

REPORT INFORMATION
  Report Type: Spontaneous
  Country: US (occurrence: None)
  Receive Date: 20140219
  Receipt Date: 20140219
  Transmission Date: 20141002
  Serious: Yes (Disabling, Other)
  Sender: FDA-Public Use
  Company Number: None

PATIENT
  Age: 51 Year
  Sex: Male
  Weight: 88.45 kg

DRUGS (1)
  1. LEVAQUIN [Suspect]

REACTIONS (4)
  - Pain in extremity [None]
  - Pain in extremity [None]
  - Tendonitis [None]
  - Joint range of motion decreased [None]
